FAERS Safety Report 4400951-8 (Version None)
Quarter: 2004Q3

REPORT INFORMATION
  Report Type: 
  Country: None (occurrence: None)
  Receive Date: 20040907
  Receipt Date: 20030822
  Transmission Date: 20050211
  Serious: No
  Sender: FDA-Public Use
  Company Number: US-BRISTOL-MYERS SQUIBB COMPANY-12363602

PATIENT
  Age: 80 Year
  Sex: Male
  Weight: 84 kg

DRUGS (5)
  1. COUMADIN [Suspect]
     Indication: ATRIAL FIBRILLATION
     Dosage: DOSE VALUE:  5 MG TUES, THURS, SAT AND SUN, ALTERNATING WITH 2.5 MG MON, WED AND FRI.
  2. PLAVIX [Suspect]
     Indication: STENT PLACEMENT
     Route: 048
     Dates: start: 20030705
  3. ATENOLOL [Concomitant]
  4. LASIX [Concomitant]
     Dosage: DURATION OF THERAPY:  3 TO 4 MONTHS
  5. ASPIRIN [Concomitant]
     Dates: start: 20030705

REACTIONS (4)
  - DRY MOUTH [None]
  - DYSGEUSIA [None]
  - HAEMORRHAGE [None]
  - PURPURA [None]
